FAERS Safety Report 16219977 (Version 1)
Quarter: 2019Q2

REPORT INFORMATION
  Report Type: Spontaneous
  Country: ZA (occurrence: ZA)
  Receive Date: 20190420
  Receipt Date: 20190420
  Transmission Date: 20190711
  Serious: Yes (Other)
  Sender: FDA-Public Use
  Company Number: ZA-AUROBINDO-AUR-APL-2019-021414

PATIENT

DRUGS (5)
  1. FLUTICASONE. [Concomitant]
     Active Substance: FLUTICASONE
     Indication: RHINITIS ALLERGIC
  2. FLUTICASONE PROPIONATE;SALMETEROL [Concomitant]
     Indication: ASTHMA
     Dosage: UNK UNK, TWO TIMES A DAY
     Route: 065
  3. FLUTICASONE. [Concomitant]
     Active Substance: FLUTICASONE
     Indication: ASTHMA
     Dosage: UNK, TWO TIMES A DAY
     Route: 045
  4. FLUTICASONE PROPIONATE;SALMETEROL [Concomitant]
     Indication: RHINITIS ALLERGIC
  5. AMPICILLIN [Suspect]
     Active Substance: AMPICILLIN
     Indication: LOWER RESPIRATORY TRACT INFECTION
     Dosage: UNK
     Route: 065
     Dates: start: 2016

REACTIONS (3)
  - Chest discomfort [Unknown]
  - Hypotension [Unknown]
  - Type I hypersensitivity [Unknown]

NARRATIVE: CASE EVENT DATE: 2016
